FAERS Safety Report 4629425-6 (Version None)
Quarter: 2005Q2

REPORT INFORMATION
  Report Type: 
  Country: None (occurrence: None)
  Receive Date: 20050405
  Receipt Date: 20050323
  Transmission Date: 20051028
  Serious: Yes (Hospitalization, Other)
  Sender: FDA-Public Use
  Company Number: 2005048640

PATIENT
  Age: 65 Year
  Sex: Female

DRUGS (5)
  1. AZITHROMYCIN [Suspect]
     Indication: BRONCHITIS
     Dosage: 500 MG (250 MG, 2 IN 1 D), ORAL
     Route: 048
     Dates: start: 20041221, end: 20041221
  2. AZITHROMYCIN [Suspect]
     Indication: BRONCHITIS
     Dosage: 500 MG (250 MG, 2 IN 1 D), ORAL
     Route: 048
     Dates: start: 20041222, end: 20041225
  3. PANTOPRAZOLE (PANTOPRAZOLE) [Concomitant]
  4. BISMUTH SUBSALICYLATE (BISMUTH SUBSALICYLATE) [Concomitant]
  5. COUGH SYRUP (ANTIMONY POTASSIUM TARTRATE, OPIUM TINCTURE, TERPIN HYDRA [Concomitant]

REACTIONS (5)
  - DRUG HYPERSENSITIVITY [None]
  - DRUG TOXICITY [None]
  - HEPATIC FAILURE [None]
  - LIVER TRANSPLANT [None]
  - RENAL FAILURE [None]
